FAERS Safety Report 16403750 (Version 1)
Quarter: 2019Q2

REPORT INFORMATION
  Report Type: Spontaneous
  Country: US (occurrence: US)
  Receive Date: 20190501
  Receipt Date: 20190501
  Transmission Date: 20190711
  Serious: Yes (Death)
  Sender: FDA-Public Use
  Company Number: None

PATIENT
  Age: 71 Year
  Sex: Male

DRUGS (1)
  1. YESCARTA [Suspect]
     Active Substance: AXICABTAGENE CILOLEUCEL
     Indication: DIFFUSE LARGE B-CELL LYMPHOMA
     Dosage: 2X10~6 PER KG  MAX 2X10^8  ONCE IV?
     Route: 042

REACTIONS (17)
  - Vasculitis [None]
  - Hyperbilirubinaemia [None]
  - Hypotension [None]
  - Blood creatinine increased [None]
  - Coagulopathy [None]
  - Sepsis [None]
  - Lethargy [None]
  - Pulmonary alveolar haemorrhage [None]
  - Dialysis [None]
  - Multiple organ dysfunction syndrome [None]
  - Cytopenia [None]
  - Rash [None]
  - Pneumonia pseudomonal [None]
  - Haptoglobin decreased [None]
  - Secretion discharge [None]
  - Cardiac arrest [None]
  - Hypoxia [None]

NARRATIVE: CASE EVENT DATE: 20190418
